FAERS Safety Report 26122091 (Version 1)
Quarter: 2025Q4

REPORT INFORMATION
  Report Type: Report from Study
  Country: CA (occurrence: CA)
  Receive Date: 20251204
  Receipt Date: 20251204
  Transmission Date: 20260117
  Serious: Yes (Hospitalization)
  Sender: BAYER HEALTHCARE PHARMACEUTICALS INC.
  Company Number: CA-BAYER-2025A155625

PATIENT
  Age: 71 Year
  Sex: Male

DRUGS (3)
  1. SEVABERTINIB [Suspect]
     Active Substance: SEVABERTINIB
     Indication: HER2 mutant non-small cell lung cancer
     Dosage: 20 MG, BID
     Route: 048
     Dates: start: 20251106
  2. SEVABERTINIB [Suspect]
     Active Substance: SEVABERTINIB
     Indication: EGFR gene mutation
     Dosage: 10 MG, BID
     Route: 048
     Dates: start: 20251128
  3. IRBESARTAN [Suspect]
     Active Substance: IRBESARTAN
     Dosage: UNK

REACTIONS (2)
  - Acute kidney injury [Recovered/Resolved]
  - Diarrhoea [Recovered/Resolved]

NARRATIVE: CASE EVENT DATE: 20251116
